FAERS Safety Report 18430251 (Version 1)
Quarter: 2020Q4

REPORT INFORMATION
  Report Type: Spontaneous
  Country: HR (occurrence: HR)
  Receive Date: 20201027
  Receipt Date: 20201027
  Transmission Date: 20210114
  Serious: Yes (Other)
  Sender: FDA-Public Use
  Company Number: HR-TEVA-2020-HR-1840884

PATIENT
  Age: 40 Year
  Sex: Female

DRUGS (5)
  1. EGLONYL [Suspect]
     Active Substance: SULPIRIDE
     Dosage: 1 DF = 1 TBL, UNIT DOSE: 3 DF
     Route: 048
     Dates: start: 20200902, end: 20200903
  2. OXAZEPAM. [Suspect]
     Active Substance: OXAZEPAM
     Dosage: 1 DF = 1 TBL, UNIT DOSE: 3 DOSAGE FORMS
     Route: 048
     Dates: start: 20200902, end: 20200903
  3. MISAR (ALPRAZOLAM) [Suspect]
     Active Substance: ALPRAZOLAM
     Dosage: 1.5 MG
     Route: 048
     Dates: start: 20200902, end: 20200903
  4. PREGABALIN. [Suspect]
     Active Substance: PREGABALIN
     Dosage: 450 MG
     Route: 048
     Dates: start: 20200902, end: 20200903
  5. CYMBALTA [Suspect]
     Active Substance: DULOXETINE HYDROCHLORIDE
     Dosage: 1 DF = 1 TBL, UNIT DOSE: 3 DOSAGE FORMS
     Route: 048
     Dates: start: 20200902, end: 20200903

REACTIONS (2)
  - Somnolence [Unknown]
  - Suicide attempt [Unknown]

NARRATIVE: CASE EVENT DATE: 20200902
